FAERS Safety Report 10541451 (Version 1)
Quarter: 2014Q4

REPORT INFORMATION
  Report Type: Report from Study
  Country: US (occurrence: US)
  Receive Date: 20141024
  Receipt Date: 20141024
  Transmission Date: 20150529
  Serious: Yes (Death, Hospitalization)
  Sender: FDA-Public Use
  Company Number: US-BRISTOL-MYERS SQUIBB COMPANY-21506993

PATIENT
  Age: 68 Year
  Sex: Female
  Weight: 59.1 kg

DRUGS (31)
  1. ACETAMINOPHEN. [Concomitant]
     Active Substance: ACETAMINOPHEN
     Route: 048
     Dates: start: 20140502
  2. AMLODIPINE [Concomitant]
     Active Substance: AMLODIPINE BESYLATE
     Dates: start: 20140722
  3. IPILIMUMAB [Suspect]
     Active Substance: IPILIMUMAB
     Indication: SMALL CELL LUNG CANCER
     Dosage: TOTAL DOSE: 66MG
     Route: 042
     Dates: start: 20140707, end: 20140818
  4. BACITRACIN. [Concomitant]
     Active Substance: BACITRACIN
     Dosage: 1 DF: 500 UNITS/G
     Route: 061
     Dates: start: 20140506
  5. FLORASTOR [Concomitant]
     Active Substance: SACCHAROMYCES CEREVISIAE
     Dates: start: 20140903
  6. LASIX [Concomitant]
     Active Substance: FUROSEMIDE
  7. EPOETIN ALFA [Concomitant]
     Active Substance: ERYTHROPOIETIN
     Dates: start: 20140428
  8. OCTREOTIDE [Concomitant]
     Active Substance: OCTREOTIDE
     Dates: start: 20140428
  9. LEVETIRACETAM. [Concomitant]
     Active Substance: LEVETIRACETAM
     Route: 048
     Dates: start: 20140502
  10. DIPHENOXYLATE + ATROPINE [Concomitant]
     Dates: start: 20140818
  11. PREDNISONE. [Concomitant]
     Active Substance: PREDNISONE
  12. MACROBID [Concomitant]
     Active Substance: NITROFURANTOIN\NITROFURANTOIN MONOHYDRATE
     Route: 048
  13. PEPCID [Concomitant]
     Active Substance: FAMOTIDINE
     Dosage: PEPCID 20MG TABS
     Route: 048
  14. NIVOLUMAB [Suspect]
     Active Substance: NIVOLUMAB
     Indication: SMALL CELL LUNG CANCER
     Dosage: DOSAGE: TOTAL DOSE 66 MG?RECENT DOSE:18AUG14
     Route: 042
     Dates: start: 20140818, end: 20140818
  15. SANDOSTATIN [Concomitant]
     Active Substance: OCTREOTIDE ACETATE
     Dosage: 1 DF: 200MCG/ML INJECTABLE SOLUTION
     Dates: start: 20140428
  16. PANTOPRAZOLE [Concomitant]
     Active Substance: PANTOPRAZOLE SODIUM
     Route: 048
     Dates: start: 20140502
  17. ONDANSETRON [Concomitant]
     Active Substance: ONDANSETRON
     Route: 048
     Dates: start: 20140714
  18. ENALAPRIL [Concomitant]
     Active Substance: ENALAPRIL
     Route: 048
  19. POTASSIUM CHLORIDE. [Concomitant]
     Active Substance: POTASSIUM CHLORIDE
  20. GLIPIZIDE. [Concomitant]
     Active Substance: GLIPIZIDE
     Dates: start: 20140408
  21. OXYCODONE [Concomitant]
     Active Substance: OXYCODONE
     Route: 048
     Dates: start: 20140502
  22. DEXAMETHASONE. [Concomitant]
     Active Substance: DEXAMETHASONE
     Dates: start: 20140718
  23. DOCUSATE SODIUM + SENNA [Concomitant]
     Dates: start: 20140729
  24. PROCRIT [Concomitant]
     Active Substance: ERYTHROPOIETIN
     Dosage: 1 DF: 4000 UNITS/ML
     Dates: start: 20140428
  25. COMPAZINE [Concomitant]
     Active Substance: PROCHLORPERAZINE MALEATE
     Route: 048
     Dates: start: 20140716
  26. LEVOTHYROXINE [Concomitant]
     Active Substance: LEVOTHYROXINE
     Route: 048
     Dates: start: 20130828
  27. LISINOPRIL. [Concomitant]
     Active Substance: LISINOPRIL
     Route: 048
     Dates: start: 20140402
  28. LORAZEPAM. [Concomitant]
     Active Substance: LORAZEPAM
     Route: 048
     Dates: start: 20140716
  29. ASPIRIN. [Concomitant]
     Active Substance: ASPIRIN
     Route: 048
  30. CEFTRIAXONE. [Concomitant]
     Active Substance: CEFTRIAXONE
  31. BLOOD TRANSFUSION [Concomitant]
     Active Substance: WHOLE BLOOD

REACTIONS (2)
  - Malignant neoplasm progression [Fatal]
  - Cardiomyopathy [Recovering/Resolving]

NARRATIVE: CASE EVENT DATE: 20140926
